FAERS Safety Report 7183480-0 (Version None)
Quarter: 2010Q4

REPORT INFORMATION
  Report Type: 
  Country: None (occurrence: None)
  Receive Date: 20101222
  Receipt Date: 20101207
  Transmission Date: 20110411
  Serious: Yes (Hospitalization)
  Sender: FDA-Public Use
  Company Number: PHFR2010GB05147

PATIENT
  Sex: Female

DRUGS (11)
  1. CLOZARIL [Suspect]
     Indication: SCHIZOPHRENIA
     Dosage: 300 MG DAILY
     Route: 048
     Dates: start: 20040917
  2. PARACETAMOL [Concomitant]
     Dosage: 1 G, QID
     Route: 048
  3. METFORMIN [Concomitant]
     Dosage: 500 MG, BID
     Route: 048
  4. ASPIRIN [Concomitant]
     Dosage: 75 MG, QD
     Route: 048
  5. SIMVASTATIN [Concomitant]
     Dosage: 20 MG NOCTE
     Route: 048
  6. QUINAPRIL [Concomitant]
     Dosage: 20 MG NOCTE
     Route: 048
  7. FERROUS FUMARATE [Concomitant]
     Dosage: 210 MG, BID
     Route: 048
  8. LANSOPRAZOLE [Concomitant]
     Dosage: 30 MG, QD
     Route: 048
  9. DICLOFENAC [Concomitant]
     Dosage: 50 MG, TID
     Route: 048
  10. PIRENZEPINE [Concomitant]
     Dosage: 25 MG MANE
     Route: 048
  11. MOVICOL [Concomitant]
     Dosage: UNK
     Route: 048

REACTIONS (2)
  - ANAEMIA [None]
  - PELVIC FRACTURE [None]
